FAERS Safety Report 8270005-1 (Version None)
Quarter: 2012Q2

REPORT INFORMATION
  Report Type: 
  Country: None (occurrence: None)
  Receive Date: 20120405
  Receipt Date: 20120322
  Transmission Date: 20120825
  Serious: Yes (Hospitalization, Other)
  Sender: FDA-Public Use
  Company Number: JPI-P-019961

PATIENT
  Age: 48 Year
  Sex: Female
  Weight: 88.905 kg

DRUGS (7)
  1. LEVOTHYROXINE SODIUM [Concomitant]
  2. XYREM [Suspect]
     Indication: INSOMNIA
     Dosage: SEE IMAGE
     Route: 048
     Dates: start: 20091016
  3. XYREM [Suspect]
     Indication: FIBROMYALGIA
     Dosage: SEE IMAGE
     Route: 048
     Dates: start: 20091016
  4. XYREM [Suspect]
     Indication: INSOMNIA
     Dosage: SEE IMAGE
     Route: 048
     Dates: end: 20111201
  5. XYREM [Suspect]
     Indication: FIBROMYALGIA
     Dosage: SEE IMAGE
     Route: 048
     Dates: end: 20111201
  6. PRISTIQ [Concomitant]
  7. TRIAMTERENE [Concomitant]

REACTIONS (3)
  - FALL [None]
  - SPONDYLOLISTHESIS [None]
  - BACK INJURY [None]
